FAERS Safety Report 7385163-0 (Version None)
Quarter: 2011Q1

REPORT INFORMATION
  Report Type: 
  Country: None (occurrence: None)
  Receive Date: 20110330
  Receipt Date: 20110317
  Transmission Date: 20110831
  Serious: Yes (Life-Threatening)
  Sender: FDA-Public Use
  Company Number: CTI_01285_2010

PATIENT
  Sex: Male

DRUGS (4)
  1. MEIACT MS (CEFDITOREN PIVOXIL) [Suspect]
     Indication: NASOPHARYNGITIS
     Route: 048
     Dates: start: 20101130, end: 20101208
  2. MEIACT MS (CEFDITOREN PIVOXIL) [Suspect]
     Indication: THERMAL BURN
     Route: 048
     Dates: start: 20101110, end: 20101118
  3. CLARITHROMYCIN [Concomitant]
     Route: 048
     Dates: start: 20101023, end: 20101025
  4. CLARITHROMYCIN [Concomitant]
     Indication: PRODUCT USED FOR UNKNOWN INDICATION
     Route: 048
     Dates: start: 20101118, end: 20101123

REACTIONS (2)
  - HYPOGLYCAEMIA [None]
  - CARNITINE DECREASED [None]
